FAERS Safety Report 6419572-0 (Version None)
Quarter: 2009Q4

REPORT INFORMATION
  Report Type: 
  Country: None (occurrence: None)
  Receive Date: 20091029
  Receipt Date: 20091020
  Transmission Date: 20100525
  Serious: Yes (Other)
  Sender: FDA-Public Use
  Company Number: US-WYE-H11700809

PATIENT
  Sex: Female
  Weight: 112.14 kg

DRUGS (4)
  1. PRISTIQ [Suspect]
     Indication: DEPRESSION
     Route: 048
     Dates: start: 20090801
  2. MIDRIN [Concomitant]
     Indication: HEADACHE
     Dosage: UNFNOWN DOSE PRN
     Route: 048
  3. ENBREL [Concomitant]
     Dosage: UNKNOWN DOSE WEEKLY
     Route: 058
  4. VERAPAMIL [Concomitant]
     Indication: HEADACHE

REACTIONS (1)
  - SUICIDAL IDEATION [None]
